FAERS Safety Report 24936662 (Version 9)
Quarter: 2025Q4

REPORT INFORMATION
  Report Type: Spontaneous
  Country: AR (occurrence: AR)
  Receive Date: 20250206
  Receipt Date: 20251211
  Transmission Date: 20260117
  Serious: Yes (Other)
  Sender: MYLAN
  Company Number: AR-MYLANLABS-2025M1010376

PATIENT
  Age: 15 Year
  Sex: Female

DRUGS (4)
  1. CLOZAPINE [Suspect]
     Active Substance: CLOZAPINE
     Indication: Schizophrenia
     Dosage: UNK
  2. CLOZAPINE [Suspect]
     Active Substance: CLOZAPINE
     Dosage: 100 MILLIGRAM
  3. CLOZAPINE [Suspect]
     Active Substance: CLOZAPINE
     Dosage: 125 MILLIGRAM
  4. VALPROATE SODIUM [Concomitant]
     Active Substance: VALPROATE SODIUM
     Dosage: 750 MILLIGRAM, QD (DAILY)
     Dates: start: 202502

REACTIONS (10)
  - Neutropenia [Recovered/Resolved]
  - Psychiatric decompensation [Recovering/Resolving]
  - Hypersensitivity [Unknown]
  - Secretion discharge [Unknown]
  - Pyrexia [Unknown]
  - Monocyte count increased [Not Recovered/Not Resolved]
  - Red blood cell count decreased [Not Recovered/Not Resolved]
  - Eosinophil count increased [Recovered/Resolved]
  - Lymphocyte count increased [Recovered/Resolved]
  - Off label use [Unknown]

NARRATIVE: CASE EVENT DATE: 20230505
